FAERS Safety Report 8092216-0 (Version None)
Quarter: 2012Q1

REPORT INFORMATION
  Report Type: 
  Country: None (occurrence: None)
  Receive Date: 20120129
  Receipt Date: 20111107
  Transmission Date: 20120608
  Serious: No
  Sender: FDA-Public Use
  Company Number: US-ABBOTT-11P-163-0873114-00

PATIENT
  Sex: Female
  Weight: 95.34 kg

DRUGS (4)
  1. ETODOLAC [Concomitant]
     Indication: PAIN
  2. HUMIRA [Suspect]
     Dates: start: 20110601
  3. HUMIRA [Suspect]
     Indication: RHEUMATOID ARTHRITIS
     Dates: start: 20060101, end: 20110301
  4. HUMIRA [Suspect]
     Dates: start: 20110501, end: 20110601

REACTIONS (1)
  - SKIN LESION [None]
